FAERS Safety Report 17417693 (Version 1)
Quarter: 2020Q1

REPORT INFORMATION
  Report Type: Spontaneous
  Country: NL (occurrence: IT)
  Receive Date: 20200214
  Receipt Date: 20200214
  Transmission Date: 20200409
  Serious: Yes (Other)
  Sender: FDA-Public Use
  Company Number: IT-FRESENIUS KABI-FK202001428

PATIENT
  Age: 66 Year
  Sex: Male

DRUGS (5)
  1. PANTOPRAZOLE SODIUM SESQUIHYDRATE [Concomitant]
     Active Substance: PANTOPRAZOLE SODIUM
  2. LINEZOLID 2 MG/ML [Suspect]
     Active Substance: LINEZOLID
     Indication: PNEUMONITIS
     Dosage: 2 DF/DAY
     Route: 042
     Dates: start: 20191211, end: 20191214
  3. PREDNISONE. [Concomitant]
     Active Substance: PREDNISONE
  4. PHENOBARBITAL SODIUM. [Concomitant]
     Active Substance: PHENOBARBITAL SODIUM
  5. LACOSAMIDE. [Concomitant]
     Active Substance: LACOSAMIDE

REACTIONS (2)
  - Sepsis [Recovering/Resolving]
  - Drug ineffective [Recovering/Resolving]

NARRATIVE: CASE EVENT DATE: 20191215
